FAERS Safety Report 21101693 (Version 2)
Quarter: 2022Q3

REPORT INFORMATION
  Report Type: Spontaneous
  Country: NO (occurrence: None)
  Receive Date: 20220719
  Receipt Date: 20220726
  Transmission Date: 20221027
  Serious: Yes (Life-Threatening, Hospitalization)
  Sender: FDA-Public Use
  Company Number: 2022A254659

PATIENT
  Age: 69 Year
  Sex: Male

DRUGS (1)
  1. DAPAGLIFLOZIN [Suspect]
     Active Substance: DAPAGLIFLOZIN
     Route: 065
     Dates: start: 20220105, end: 20220628

REACTIONS (3)
  - Sepsis [Recovering/Resolving]
  - Skin necrosis [Recovering/Resolving]
  - Scrotal abscess [Recovering/Resolving]

NARRATIVE: CASE EVENT DATE: 20220627
